FAERS Safety Report 8013822-5 (Version None)
Quarter: 2011Q4

REPORT INFORMATION
  Report Type: 
  Country: None (occurrence: None)
  Receive Date: 20111223
  Receipt Date: 20111208
  Transmission Date: 20120403
  Serious: Yes (Death, Other)
  Sender: FDA-Public Use
  Company Number: DSJ-2011-26210

PATIENT
  Age: 67 Year
  Sex: Male

DRUGS (1)
  1. BENICAR [Suspect]
     Indication: HYPERTENSION
     Dosage: (1 IN 1 D), PER ORAL
     Route: 048

REACTIONS (1)
  - PANCREATIC CARCINOMA [None]
